FAERS Safety Report 5976418-2 (Version None)
Quarter: 2008Q4

REPORT INFORMATION
  Report Type: 
  Country: None (occurrence: None)
  Receive Date: 20081202
  Receipt Date: 20081121
  Transmission Date: 20090506
  Serious: Yes (Hospitalization)
  Sender: FDA-Public Use
  Company Number: JP-ABBOTT-08P-087-0490507-00

PATIENT
  Age: 76 Year
  Sex: Female

DRUGS (4)
  1. SEVOFLURANE [Suspect]
     Indication: MAINTENANCE OF ANAESTHESIA
     Route: 055
  2. THIAMYLAL [Concomitant]
     Indication: INDUCTION OF ANAESTHESIA
     Route: 065
  3. OXYGEN [Concomitant]
     Indication: MAINTENANCE OF ANAESTHESIA
     Route: 055
  4. REMIFENTANIL [Concomitant]
     Indication: MAINTENANCE OF ANAESTHESIA
     Route: 042

REACTIONS (1)
  - MYASTHENIA GRAVIS [None]
